FAERS Safety Report 6508116-0 (Version None)
Quarter: 2009Q4

REPORT INFORMATION
  Report Type: 
  Country: None (occurrence: None)
  Receive Date: 20091221
  Receipt Date: 20091216
  Transmission Date: 20100525
  Serious: Yes (Hospitalization)
  Sender: FDA-Public Use
  Company Number: US-JNJFOC-20091205376

PATIENT
  Age: 51 Year
  Sex: Male

DRUGS (2)
  1. PALIPERIDONE [Suspect]
     Indication: PARANOIA
     Route: 048
  2. PALIPERIDONE [Suspect]
     Indication: HALLUCINATION, VISUAL
     Route: 048

REACTIONS (1)
  - CATATONIA [None]
